FAERS Safety Report 5726082-2 (Version None)
Quarter: 2008Q2

REPORT INFORMATION
  Report Type: 
  Country: None (occurrence: None)
  Receive Date: 20080502
  Receipt Date: 20080421
  Transmission Date: 20081010
  Serious: Yes (Hospitalization)
  Sender: FDA-Public Use
  Company Number: US-AMGEN-QUU275692

PATIENT
  Sex: Female

DRUGS (2)
  1. ENBREL [Suspect]
     Indication: RHEUMATOID ARTHRITIS
     Route: 058
     Dates: start: 20011101
  2. METHOTREXATE [Concomitant]
     Dates: start: 20070101

REACTIONS (5)
  - DRY EYE [None]
  - INJECTION SITE PAIN [None]
  - KNEE ARTHROPLASTY [None]
  - OSTEOPOROSIS [None]
  - STRESS FRACTURE [None]
